FAERS Safety Report 25266003 (Version 2)
Quarter: 2025Q2

REPORT INFORMATION
  Report Type: Spontaneous
  Country: US (occurrence: US)
  Receive Date: 20250504
  Receipt Date: 20250513
  Transmission Date: 20250717
  Serious: No
  Sender: VERO BIOTECH
  Company Number: US-VEROBIOTECH-2025USVEROSPO00129

PATIENT

DRUGS (1)
  1. GENOSYL [Suspect]
     Active Substance: NITRIC OXIDE
     Indication: Product used for unknown indication

REACTIONS (2)
  - Hypoventilation [Unknown]
  - Underdose [Unknown]
